FAERS Safety Report 10188279 (Version 1)
Quarter: 2014Q2

REPORT INFORMATION
  Report Type: Spontaneous
  Country: US (occurrence: None)
  Receive Date: 20140521
  Receipt Date: 20140521
  Transmission Date: 20141212
  Serious: No
  Sender: FDA-Public Use
  Company Number: None

PATIENT
  Age: 42 Year
  Sex: Female
  Weight: 74.84 kg

DRUGS (1)
  1. MIRVASO [Suspect]
     Indication: ROSACEA
     Dosage: PEA SIZE AMOUNT ONCE DAILY APPLIED TO A SURFACE USALLY THE SKIN
     Dates: start: 20140513, end: 20140518

REACTIONS (4)
  - Erythema [None]
  - Feeling hot [None]
  - Swelling face [None]
  - Local swelling [None]
